FAERS Safety Report 19406056 (Version 6)
Quarter: 2021Q3

REPORT INFORMATION
  Report Type: Report from Study
  Country: TR (occurrence: TR)
  Receive Date: 20210611
  Receipt Date: 20210802
  Transmission Date: 20211014
  Serious: Yes (Hospitalization)
  Sender: FDA-Public Use
  Company Number: TR-EISAI MEDICAL RESEARCH-EC-2021-094168

PATIENT
  Age: 71 Year
  Sex: Male
  Weight: 63 kg

DRUGS (10)
  1. LENVATINIB [Suspect]
     Active Substance: LENVATINIB
     Indication: COLORECTAL CANCER
     Route: 048
     Dates: start: 20210526, end: 20210603
  2. NOVOMIX [Concomitant]
     Active Substance: INSULIN ASPART
     Route: 030
     Dates: start: 20210501, end: 20210607
  3. PEMBROLIZUMAB. [Suspect]
     Active Substance: PEMBROLIZUMAB
     Indication: COLORECTAL CANCER
     Route: 042
     Dates: start: 20210526, end: 20210526
  4. BELOC [METOPROLOL TARTRATE] [Concomitant]
     Active Substance: METOPROLOL TARTRATE
     Dates: start: 201701
  5. PLAVIX [Concomitant]
     Active Substance: CLOPIDOGREL BISULFATE
     Dates: start: 201701
  6. CORASPIN [Concomitant]
     Active Substance: ASPIRIN
     Dates: start: 201701
  7. NOVOMIX [Concomitant]
     Active Substance: INSULIN ASPART
     Route: 030
     Dates: start: 20210501, end: 20210607
  8. LOPERMID [Concomitant]
     Dates: start: 20210530, end: 20210530
  9. LENVATINIB [Suspect]
     Active Substance: LENVATINIB
     Dosage: STARTING DOSE AT 14 MG, FLUCTUATED DOSAGE
     Route: 048
     Dates: start: 20210611
  10. DELIX [RAMIPRIL] [Concomitant]
     Active Substance: RAMIPRIL
     Dates: start: 201701

REACTIONS (1)
  - Diarrhoea [Recovered/Resolved]

NARRATIVE: CASE EVENT DATE: 20210604
